FAERS Safety Report 18436147 (Version 7)
Quarter: 2022Q1

REPORT INFORMATION
  Report Type: Report from Study
  Country: None (occurrence: US)
  Receive Date: 20201028
  Receipt Date: 20220105
  Transmission Date: 20220423
  Serious: Yes (Other)
  Sender: FDA-Public Use
  Company Number: US-AKCEA THERAPEUTICS-2020IS001375

PATIENT
  Age: 74 Year
  Sex: Male

DRUGS (2)
  1. TEGSEDI [Suspect]
     Active Substance: INOTERSEN SODIUM
     Indication: Hereditary neuropathic amyloidosis
     Route: 058
     Dates: start: 20190611, end: 20211026
  2. DEVICE [Suspect]
     Active Substance: DEVICE

REACTIONS (12)
  - Blood creatinine increased [Not Recovered/Not Resolved]
  - Bacterial test positive [Not Recovered/Not Resolved]
  - Urinary casts [Not Recovered/Not Resolved]
  - Glomerular filtration rate decreased [Not Recovered/Not Resolved]
  - Urinary occult blood positive [Unknown]
  - Urine protein/creatinine ratio abnormal [Unknown]
  - Urine abnormality [Unknown]
  - Protein urine present [Unknown]
  - Nitrite urine present [Unknown]
  - Urine ketone body present [Unknown]
  - Renal impairment [Unknown]
  - Glomerulonephritis [Unknown]

NARRATIVE: CASE EVENT DATE: 20200818
